FAERS Safety Report 21823317 (Version 6)
Quarter: 2023Q1

REPORT INFORMATION
  Report Type: Spontaneous
  Country: AR (occurrence: AR)
  Receive Date: 20230105
  Receipt Date: 20230223
  Transmission Date: 20230417
  Serious: No
  Sender: FDA-Public Use
  Company Number: AR-PFIZER INC-PV202200132177

PATIENT
  Age: 6 Year
  Sex: Male

DRUGS (1)
  1. GENOTROPIN [Suspect]
     Active Substance: SOMATROPIN
     Indication: Growth hormone deficiency
     Dosage: UNK, DAILY (0.1 MG TO 0.5 MG 7 DAYS/WEEK)
     Dates: start: 20210831

REACTIONS (6)
  - Device difficult to use [Unknown]
  - Device mechanical issue [Unknown]
  - Device issue [Unknown]
  - Device breakage [Unknown]
  - Drug dose omission by device [Unknown]
  - Wrong technique in device usage process [Unknown]

NARRATIVE: CASE EVENT DATE: 20230105
